FAERS Safety Report 21625031 (Version 2)
Quarter: 2022Q4

REPORT INFORMATION
  Report Type: Spontaneous
  Country: AU (occurrence: AU)
  Receive Date: 20221122
  Receipt Date: 20221201
  Transmission Date: 20230113
  Serious: Yes (Other)
  Sender: FDA-Public Use
  Company Number: AU-BRISTOL-MYERS SQUIBB COMPANY-2022-140039

PATIENT
  Age: 72 Year
  Sex: Male

DRUGS (4)
  1. REVLIMID [Suspect]
     Active Substance: LENALIDOMIDE
     Indication: Plasma cell myeloma
     Dosage: DOSE : REDUCED FROM 25 MG TO 15 MG;     FREQ : ^DAILY D1- D21^?25MG DAILY D1-D21 OF 28-DAY CYCLE
     Route: 048
     Dates: start: 20211222, end: 20221027
  2. REVLIMID [Suspect]
     Active Substance: LENALIDOMIDE
     Dosage: DOSE : REDUCED FROM 25 MG TO 15 MG;     FREQ : ^DAILY D1- D21^
     Route: 065
  3. ROSUVASTATIN [Concomitant]
     Active Substance: ROSUVASTATIN
     Indication: Myocardial ischaemia
     Dosage: 20MG DAILY
     Route: 048
     Dates: end: 20221028
  4. PANTOPRAZOLE [Concomitant]
     Active Substance: PANTOPRAZOLE
     Indication: Dyspepsia
     Dosage: 40MG DAILY
     Route: 048
     Dates: end: 20221028

REACTIONS (2)
  - Anaemia [Recovering/Resolving]
  - Acute kidney injury [Recovering/Resolving]

NARRATIVE: CASE EVENT DATE: 20221027
